FAERS Safety Report 8890729 (Version 1)
Quarter: 2012Q4

REPORT INFORMATION
  Report Type: 
  Country: DE (occurrence: DE)
  Receive Date: 20121106
  Receipt Date: 20121106
  Transmission Date: 20130627
  Serious: Yes (Death, Other)
  Sender: FDA-Public Use
  Company Number: DE-VERTEX PHARMACEUTICAL INC.-2012-024114

PATIENT
  Age: 68 Year
  Sex: Female

DRUGS (3)
  1. INCIVO [Suspect]
     Indication: HEPATITIS C
     Dosage: Dosage Form: Tablet
     Route: 048
  2. PEGASYS [Suspect]
     Indication: HEPATITIS C
     Route: 065
  3. COPEGUS [Suspect]
     Indication: HEPATITIS C
     Route: 065

REACTIONS (2)
  - Sepsis [Fatal]
  - Skin reaction [Unknown]
